FAERS Safety Report 8424099-0 (Version None)
Quarter: 2012Q2

REPORT INFORMATION
  Report Type: 
  Country: None (occurrence: None)
  Receive Date: 20120608
  Receipt Date: 20110421
  Transmission Date: 20120825
  Serious: No
  Sender: FDA-Public Use
  Company Number: US-ASTRAZENECA-2011SE16028

PATIENT
  Age: 50 Year
  Sex: Female

DRUGS (2)
  1. SEREVENT [Concomitant]
  2. PULMICORT FLEXHALER [Suspect]
     Indication: ASTHMA
     Dosage: 180 MCG 2 PUFFS, DAILY
     Route: 055
     Dates: start: 20010101

REACTIONS (2)
  - CHEST DISCOMFORT [None]
  - DYSPNOEA EXERTIONAL [None]
